FAERS Safety Report 15808417 (Version 1)
Quarter: 2019Q1

REPORT INFORMATION
  Report Type: Spontaneous
  Country: US (occurrence: US)
  Receive Date: 20190110
  Receipt Date: 20190110
  Transmission Date: 20190417
  Serious: Yes (Other)
  Sender: FDA-Public Use
  Company Number: US-ALLERGAN-1900780US

PATIENT
  Age: 57 Year
  Sex: Female

DRUGS (1)
  1. RESTASIS [Suspect]
     Active Substance: CYCLOSPORINE
     Indication: PRODUCT USED FOR UNKNOWN INDICATION
     Dosage: UNKNOWN
     Route: 047

REACTIONS (12)
  - Mobility decreased [Unknown]
  - Dermatitis contact [Unknown]
  - Dysstasia [Unknown]
  - Tremor [Unknown]
  - Allergy to vaccine [Unknown]
  - Joint stiffness [Unknown]
  - Increased upper airway secretion [Unknown]
  - Balance disorder [Unknown]
  - Cataract [Unknown]
  - Fall [Unknown]
  - Ankle fracture [Unknown]
  - Osteoarthritis [Unknown]
